FAERS Safety Report 8150176-8 (Version None)
Quarter: 2012Q1

REPORT INFORMATION
  Report Type: 
  Country: None (occurrence: None)
  Receive Date: 20120220
  Receipt Date: 20120217
  Transmission Date: 20120608
  Serious: No
  Sender: FDA-Public Use
  Company Number: US-PFIZER INC-2012043742

PATIENT
  Sex: Female
  Weight: 63.492 kg

DRUGS (2)
  1. CHANTIX [Suspect]
     Indication: SMOKING CESSATION THERAPY
     Dosage: UNK
     Dates: start: 20070101, end: 20070101
  2. XANAX [Concomitant]
     Indication: WITHDRAWAL SYNDROME
     Dosage: 0.25 MG,DAILY

REACTIONS (4)
  - SLEEP DISORDER [None]
  - NAUSEA [None]
  - FATIGUE [None]
  - ABNORMAL DREAMS [None]
